APPROVED DRUG PRODUCT: CHLOR-TRIMETON
Active Ingredient: CHLORPHENIRAMINE MALEATE
Strength: 100MG/ML
Dosage Form/Route: INJECTABLE;INJECTION
Application: N008794 | Product #001
Applicant: SCHERING PLOUGH HEALTHCARE PRODUCTS INC
Approved: Approved Prior to Jan 1, 1982 | RLD: No | RS: No | Type: DISCN